FAERS Safety Report 24033602 (Version 1)
Quarter: 2024Q3

REPORT INFORMATION
  Report Type: Spontaneous
  Country: US (occurrence: US)
  Receive Date: 20240701
  Receipt Date: 20240701
  Transmission Date: 20241017
  Serious: Yes (Hospitalization, Other)
  Sender: CSL BEHRING
  Company Number: US-BEH-2013036768

PATIENT
  Age: 21 Year
  Sex: Male
  Weight: 106.6 kg

DRUGS (59)
  1. PRIVIGEN [Suspect]
     Active Substance: HUMAN IMMUNOGLOBULIN G
     Indication: Immunodeficiency common variable
     Dosage: STARTED OCT-2009
     Route: 042
  2. PRIVIGEN [Suspect]
     Active Substance: HUMAN IMMUNOGLOBULIN G
     Dosage: 20 GM/ 2 VIALS; 400 ML; 30 CC/HR UP TO 150 CC/HR
     Route: 042
     Dates: start: 20121210
  3. PRIVIGEN [Suspect]
     Active Substance: HUMAN IMMUNOGLOBULIN G
     Dosage: 10GM/4 VIALS; 400 ML: 30 CC/HR UP TO 150 CC/HR
     Route: 042
     Dates: start: 20121231
  4. PRIVIGEN [Suspect]
     Active Substance: HUMAN IMMUNOGLOBULIN G
     Dosage: 10 GM/4 VIALS; 400 ML: 30 CC/HR UP TO 150 CC/HR
     Route: 042
     Dates: start: 20130121
  5. PRIVIGEN [Suspect]
     Active Substance: HUMAN IMMUNOGLOBULIN G
     Dosage: 20GM/2VIALS; 400 ML: 30 CC/HR UP TO 150 CC/HR
     Route: 042
     Dates: start: 20130211
  6. PRIVIGEN [Suspect]
     Active Substance: HUMAN IMMUNOGLOBULIN G
     Dosage: 10GM/4 VIALS; 400 ML: 30 CC/HR UP TO 150 CC/HR
     Route: 042
     Dates: start: 20130304
  7. PRIVIGEN [Suspect]
     Active Substance: HUMAN IMMUNOGLOBULIN G
     Dosage: 10GM/4 VIALS
     Route: 042
     Dates: start: 20130415
  8. PRIVIGEN [Suspect]
     Active Substance: HUMAN IMMUNOGLOBULIN G
     Dosage: 10 GM/ 4 VIALS; 400 ML: 30 CC/HR UP TO 150 CC/HR
     Route: 042
     Dates: start: 20130506
  9. PRIVIGEN [Suspect]
     Active Substance: HUMAN IMMUNOGLOBULIN G
     Dosage: 20 GMX2 ; 400 ML: 30 CC/HR UP TO 150 CC/HR
     Route: 042
     Dates: start: 2009
  10. PRIVIGEN [Suspect]
     Active Substance: HUMAN IMMUNOGLOBULIN G
     Dosage: 10GM/4 VIALS; 400 ML: 30 CC/HR UP TO 150 CC/HR
     Route: 042
     Dates: start: 2009
  11. PRIVIGEN [Suspect]
     Active Substance: HUMAN IMMUNOGLOBULIN G
     Dosage: 10GM/4 VIALS; 400 ML: 30 CC/HR UP TO 150 CC/HR
     Route: 042
     Dates: start: 2009
  12. PRIVIGEN [Suspect]
     Active Substance: HUMAN IMMUNOGLOBULIN G
     Dosage: 10 GM/ 4 VIALS; 400 ML: 30 CC/HR UP TO 150 CC/HR
     Route: 042
     Dates: start: 2009
  13. PRIVIGEN [Suspect]
     Active Substance: HUMAN IMMUNOGLOBULIN G
     Dosage: 10GM/4 VIALS
     Route: 042
     Dates: start: 2009
  14. PRIVIGEN [Suspect]
     Active Substance: HUMAN IMMUNOGLOBULIN G
     Dosage: 20GM/2VIALS; 400 ML: 30 CC/HR UP TO 150 CC/HR
     Route: 042
     Dates: start: 2009
  15. PRIVIGEN [Suspect]
     Active Substance: HUMAN IMMUNOGLOBULIN G
     Dosage: 10 GM/4 VIALS; 400 ML: 30 CC/HR UP TO 150 CC/HR
     Route: 042
     Dates: start: 2009
  16. PRIVIGEN [Suspect]
     Active Substance: HUMAN IMMUNOGLOBULIN G
     Dosage: 20 GM/ 2 VIALS; 400 ML; 30 CC/HR UP TO 150 CC/HR
     Route: 042
     Dates: start: 2009
  17. PRIVIGEN [Suspect]
     Active Substance: HUMAN IMMUNOGLOBULIN G
     Dosage: 10 GM/4 VIALS; 400 ML: 30 CC/HR UP TO 150 CC/HR
     Route: 042
     Dates: start: 2012
  18. PRIVIGEN [Suspect]
     Active Substance: HUMAN IMMUNOGLOBULIN G
     Dosage: 10 GM/4 VIALS; 400 ML: 30 CC/HR UP TO 150 CC/HR
     Route: 042
     Dates: start: 2013
  19. HUMAN IMMUNOGLOBULIN G [Suspect]
     Active Substance: HUMAN IMMUNOGLOBULIN G
     Indication: Immunodeficiency common variable
     Dosage: EVERY 3-4 WEEKS
     Route: 042
  20. HUMAN IMMUNOGLOBULIN G [Suspect]
     Active Substance: HUMAN IMMUNOGLOBULIN G
     Dosage: UNK
     Route: 042
     Dates: start: 201303
  21. HUMAN IMMUNOGLOBULIN G [Suspect]
     Active Substance: HUMAN IMMUNOGLOBULIN G
     Dosage: UNK
     Route: 042
     Dates: start: 201305
  22. SULFAMETHOXAZOLE AND TRIMETHOPRIM [Suspect]
     Active Substance: SULFAMETHOXAZOLE\TRIMETHOPRIM
  23. DOXYCYCLINE [Suspect]
     Active Substance: DOXYCYCLINE\DOXYCYCLINE HYCLATE
  24. BACTRIM [Suspect]
     Active Substance: SULFAMETHOXAZOLE\TRIMETHOPRIM
  25. CAPOTEN [Concomitant]
     Active Substance: CAPTOPRIL
     Indication: Hypertension
     Route: 048
  26. CAPOTEN [Concomitant]
     Active Substance: CAPTOPRIL
  27. KLONOPIN [Concomitant]
     Active Substance: CLONAZEPAM
     Dosage: HS
     Route: 048
  28. VITAMIN B12 [Concomitant]
     Active Substance: CYANOCOBALAMIN
     Route: 048
  29. FOCALIN [Concomitant]
     Active Substance: DEXMETHYLPHENIDATE HYDROCHLORIDE
     Route: 048
  30. FOCALIN [Concomitant]
     Active Substance: DEXMETHYLPHENIDATE HYDROCHLORIDE
  31. KRISTALOSE [Concomitant]
     Active Substance: LACTULOSE
     Indication: Constipation
     Route: 048
  32. LAMICTAL [Concomitant]
     Active Substance: LAMOTRIGINE
     Dosage: 0800
     Route: 048
  33. LAMICTAL [Concomitant]
     Active Substance: LAMOTRIGINE
     Dosage: AT LUNCH
     Route: 048
  34. MELATONIN [Concomitant]
     Active Substance: MELATONIN
     Dosage: 3 MG TABLET; HS
     Route: 048
  35. SEROQUEL XR [Concomitant]
     Active Substance: QUETIAPINE FUMARATE
     Dosage: 200 MG TABLET;IN EVENING (HS)
     Route: 048
  36. VITAMIN B12 [Concomitant]
     Active Substance: CYANOCOBALAMIN
     Route: 048
  37. ALDACTAZIDE [Concomitant]
     Active Substance: HYDROCHLOROTHIAZIDE\SPIRONOLACTONE
     Indication: Hypertension
     Dosage: 25/25 TABLET
     Route: 048
  38. IMITREX [Concomitant]
     Active Substance: SUMATRIPTAN SUCCINATE
     Indication: Headache
     Dosage: 2 TIMES DAILY PRN
     Route: 058
  39. RIBOFLAVIN [Concomitant]
     Active Substance: RIBOFLAVIN
  40. CLINDAMYCIN [Concomitant]
     Active Substance: CLINDAMYCIN
     Indication: Acne
  41. KETOCONAZOLE [Concomitant]
     Active Substance: KETOCONAZOLE
     Indication: Seborrhoeic dermatitis
  42. KETOCONAZOLE [Concomitant]
     Active Substance: KETOCONAZOLE
     Indication: Seborrhoeic dermatitis
  43. CEFOXITIN [Concomitant]
     Active Substance: CEFOXITIN SODIUM
     Route: 040
  44. AMIKACIN [Concomitant]
     Active Substance: AMIKACIN
     Dosage: IVPB
     Route: 040
  45. CLARITHROMYCIN [Concomitant]
     Active Substance: CLARITHROMYCIN
     Route: 048
  46. DEXMETHYLPHENIDATE [Concomitant]
     Active Substance: DEXMETHYLPHENIDATE
     Route: 048
  47. DEXMETHYLPHENIDATE [Concomitant]
     Active Substance: DEXMETHYLPHENIDATE
     Dosage: A.M.
     Route: 048
  48. DEXMETHYLPHENIDATE [Concomitant]
     Active Substance: DEXMETHYLPHENIDATE
     Dosage: AT LUNCHTIME
     Route: 048
  49. DEXMETHYLPHENIDATE [Concomitant]
     Active Substance: DEXMETHYLPHENIDATE
     Dosage: AT 1600 HOURS
     Route: 048
  50. IBUPROFEN [Concomitant]
     Active Substance: IBUPROFEN
     Dosage: 200 MG TABLET; 800 MG TID PRN
     Route: 048
  51. NAPROXEN [Concomitant]
     Active Substance: NAPROXEN
     Dosage: 500 MG EVERY 8 HOURS PRN
     Route: 048
  52. NYSTATIN [Concomitant]
     Active Substance: NYSTATIN
     Dosage: TO AFFECTED AREAS
     Route: 061
  53. PANTOPRAZOLE [Concomitant]
     Active Substance: PANTOPRAZOLE
     Dosage: 40 MG PER DAY
     Route: 048
  54. PROMETHAZINE [Concomitant]
     Active Substance: PROMETHAZINE HYDROCHLORIDE
     Dosage: 25 MG EVERY 4 HOURS PRN
     Route: 048
  55. SPIRONOLACTONE AND HYDROCHLOROTHIAZIDE [Concomitant]
     Active Substance: HYDROCHLOROTHIAZIDE\SPIRONOLACTONE
     Dosage: 25/25 MG TABLET
     Route: 048
  56. TRAMADOL [Concomitant]
     Active Substance: TRAMADOL\TRAMADOL HYDROCHLORIDE
     Dosage: 50 MG EVERY 6 HOURS PRN
     Route: 048
  57. TRYPSIN [Concomitant]
     Active Substance: TRYPSIN
     Dosage: BID PRN
     Route: 061
  58. GAMMAGARD [Concomitant]
     Active Substance: HUMAN IMMUNOGLOBULIN G
     Dosage: IVPB
     Route: 040
  59. DOXEPIN [Concomitant]
     Active Substance: DOXEPIN
     Dosage: 10 MG;HS
     Route: 048

REACTIONS (11)
  - Suspected transmission of an infectious agent via product [Unknown]
  - Hepatitis B [Unknown]
  - Chromaturia [Unknown]
  - Hepatic enzyme increased [Unknown]
  - Pyrexia [Unknown]
  - Pyrexia [Not Recovered/Not Resolved]
  - Malaise [Unknown]
  - Headache [Unknown]
  - Asthenia [Unknown]
  - Decreased appetite [Unknown]
  - Rash [Unknown]

NARRATIVE: CASE EVENT DATE: 20130305
